FAERS Safety Report 7112185-7 (Version None)
Quarter: 2010Q4

REPORT INFORMATION
  Report Type: 
  Country: None (occurrence: None)
  Receive Date: 20101119
  Receipt Date: 20100209
  Transmission Date: 20110411
  Serious: Yes (Other)
  Sender: FDA-Public Use
  Company Number: A0844042A

PATIENT
  Age: 73 Year
  Sex: Male

DRUGS (3)
  1. AVODART [Suspect]
     Dosage: 1CAP PER DAY
     Route: 065
  2. HYDROXYZINE [Concomitant]
  3. CORTICOSTEROIDS [Concomitant]
     Route: 061

REACTIONS (1)
  - RASH GENERALISED [None]
